FAERS Safety Report 18619516 (Version 1)
Quarter: 2020Q4

REPORT INFORMATION
  Report Type: Report from Study
  Country: US (occurrence: US)
  Receive Date: 20201215
  Receipt Date: 20201215
  Transmission Date: 20210114
  Serious: Yes (Other)
  Sender: FDA-Public Use
  Company Number: US-BRISTOL-MYERS SQUIBB COMPANY-BMS-2020-105602

PATIENT
  Sex: Male
  Weight: 158.75 kg

DRUGS (1)
  1. APIXABAN [Suspect]
     Active Substance: APIXABAN
     Indication: CEREBROVASCULAR ACCIDENT PROPHYLAXIS
     Dosage: 5 MILLIGRAM, BID
     Route: 048
     Dates: start: 2020

REACTIONS (6)
  - Pain in extremity [Unknown]
  - Lymphoma [Unknown]
  - Circumstance or information capable of leading to medication error [Unknown]
  - Discomfort [Unknown]
  - Arthralgia [Unknown]
  - Memory impairment [Unknown]
